FAERS Safety Report 6191692-8 (Version None)
Quarter: 2009Q2

REPORT INFORMATION
  Report Type: 
  Country: None (occurrence: None)
  Receive Date: 20090515
  Receipt Date: 20090504
  Transmission Date: 20091009
  Serious: Yes (Hospitalization, Other)
  Sender: FDA-Public Use
  Company Number: FR-AMGEN-US257652

PATIENT
  Sex: Female

DRUGS (6)
  1. ENBREL [Suspect]
     Indication: ANKYLOSING SPONDYLITIS
     Route: 058
     Dates: start: 20050101, end: 20060701
  2. PREDNISONE [Concomitant]
     Dosage: UNKNOWN
  3. MAGNESIUM SULFATE [Concomitant]
     Dosage: UNKNOWN
  4. LACTOSE [Concomitant]
     Dosage: UNKNOWN
  5. KLIPAL [Concomitant]
  6. HUMIRA [Concomitant]
     Dates: start: 20061102, end: 20070401

REACTIONS (5)
  - ANKYLOSING SPONDYLITIS [None]
  - CONDITION AGGRAVATED [None]
  - PULMONARY FIBROSIS [None]
  - PULMONARY GRANULOMA [None]
  - PULMONARY SARCOIDOSIS [None]
